FAERS Safety Report 7979209-6 (Version None)
Quarter: 2011Q4

REPORT INFORMATION
  Report Type: 
  Country: None (occurrence: None)
  Receive Date: 20111214
  Receipt Date: 20111206
  Transmission Date: 20120403
  Serious: Yes (Other)
  Sender: FDA-Public Use
  Company Number: US-BAYER-2011-091987

PATIENT
  Age: 24 Year
  Sex: Female
  Weight: 129 kg

DRUGS (1)
  1. MIRENA [Suspect]
     Indication: CONTRACEPTION
     Dosage: 20 MCG/24HR, CONT
     Route: 015
     Dates: start: 20110101, end: 20110916

REACTIONS (4)
  - ECTOPIC PREGNANCY WITH INTRAUTERINE DEVICE [None]
  - GENITAL HAEMORRHAGE [None]
  - PAIN [None]
  - DEVICE DISLOCATION [None]
